FAERS Safety Report 16269081 (Version 2)
Quarter: 2019Q2

REPORT INFORMATION
  Report Type: Spontaneous
  Country: US (occurrence: US)
  Receive Date: 20190503
  Receipt Date: 20190513
  Transmission Date: 20190711
  Serious: Yes (Hospitalization, Other)
  Sender: FDA-Public Use
  Company Number: US-SA-2019SA119390

PATIENT
  Age: 56 Year
  Sex: Male

DRUGS (4)
  1. CLOPIDOGREL BISULFATE. [Suspect]
     Active Substance: CLOPIDOGREL BISULFATE
  2. DABIGATRAN [Suspect]
     Active Substance: DABIGATRAN
     Indication: HYPERTENSION
  3. DABIGATRAN [Suspect]
     Active Substance: DABIGATRAN
     Indication: ATRIAL FIBRILLATION
  4. PROTAMINE [Concomitant]
     Active Substance: PROTAMINE

REACTIONS (1)
  - Coagulopathy [Recovered/Resolved]
